FAERS Safety Report 16184037 (Version 1)
Quarter: 2019Q2

REPORT INFORMATION
  Report Type: Spontaneous
  Country: JP (occurrence: JP)
  Receive Date: 20190411
  Receipt Date: 20190411
  Transmission Date: 20190711
  Serious: Yes (Other)
  Sender: FDA-Public Use
  Company Number: JP-PFIZER INC-2019156802

PATIENT
  Age: 37 Year
  Sex: Female

DRUGS (4)
  1. RISPERIDONE. [Suspect]
     Active Substance: RISPERIDONE
  2. OLANZAPINE. [Suspect]
     Active Substance: OLANZAPINE
  3. QUETIAPINE FUMARATE. [Suspect]
     Active Substance: QUETIAPINE FUMARATE
  4. LORAZEPAM. [Suspect]
     Active Substance: LORAZEPAM

REACTIONS (2)
  - Intentional overdose [Unknown]
  - Posterior reversible encephalopathy syndrome [Recovering/Resolving]
